FAERS Safety Report 20144118 (Version 1)
Quarter: 2021Q4

REPORT INFORMATION
  Report Type: Report from Study
  Country: IT (occurrence: IT)
  Receive Date: 20211203
  Receipt Date: 20211203
  Transmission Date: 20220303
  Serious: Yes (Other)
  Sender: FDA-Public Use
  Company Number: None

PATIENT
  Age: 63 Year
  Sex: Female
  Weight: 67 kg

DRUGS (1)
  1. CISPLATIN [Suspect]
     Active Substance: CISPLATIN
     Indication: Oropharyngeal squamous cell carcinoma
     Dosage: 170 MG
     Dates: start: 20211018, end: 20211108

REACTIONS (2)
  - Hypoacusis [Unknown]
  - Ototoxicity [Unknown]

NARRATIVE: CASE EVENT DATE: 20211108
